FAERS Safety Report 10021481 (Version 1)
Quarter: 2014Q1

REPORT INFORMATION
  Report Type: Spontaneous
  Country: US (occurrence: None)
  Receive Date: 20140318
  Receipt Date: 20140318
  Transmission Date: 20141002
  Serious: Yes (Other)
  Sender: FDA-Public Use
  Company Number: None

PATIENT
  Age: 23 Year
  Sex: Female
  Weight: 53.52 kg

DRUGS (1)
  1. CONCERTA [Suspect]
     Indication: ATTENTION DEFICIT/HYPERACTIVITY DISORDER
     Route: 048
     Dates: start: 20140306, end: 20140317

REACTIONS (8)
  - Depression [None]
  - Suicidal ideation [None]
  - Product substitution issue [None]
  - Disturbance in attention [None]
  - Thinking abnormal [None]
  - Fatigue [None]
  - Somnolence [None]
  - Mood altered [None]
